FAERS Safety Report 8003249-4 (Version None)
Quarter: 2011Q4

REPORT INFORMATION
  Report Type: 
  Country: None (occurrence: None)
  Receive Date: 20111220
  Receipt Date: 20111213
  Transmission Date: 20120403
  Serious: No
  Sender: FDA-Public Use
  Company Number: WAES 1103USA00488B1

PATIENT
  Sex: Female

DRUGS (22)
  1. TRUVADA [Suspect]
     Indication: HUMAN IMMUNODEFICIENCY VIRUS TRANSMISSION
     Dosage: 1 TAB, DAILY
     Dates: start: 20090618, end: 20090717
  2. TRUVADA [Suspect]
     Indication: HIV INFECTION
     Dosage: 1 TAB, DAILY
     Dates: start: 20090618, end: 20090717
  3. TRUVADA [Suspect]
     Indication: HUMAN IMMUNODEFICIENCY VIRUS TRANSMISSION
     Dosage: 1 TAB, DAILY
     Dates: start: 20090721, end: 20091211
  4. TRUVADA [Suspect]
     Indication: HIV INFECTION
     Dosage: 1 TAB, DAILY
     Dates: start: 20090721, end: 20091211
  5. TRUVADA [Suspect]
     Indication: HUMAN IMMUNODEFICIENCY VIRUS TRANSMISSION
     Dosage: 1 TAB, DAILY
     Dates: start: 20091213, end: 20100616
  6. TRUVADA [Suspect]
     Indication: HIV INFECTION
     Dosage: 1 TAB, DAILY
     Dates: start: 20091213, end: 20100616
  7. TRUVADA [Suspect]
     Indication: HUMAN IMMUNODEFICIENCY VIRUS TRANSMISSION
     Dosage: 1 TAB, DAILY
     Dates: start: 20101119, end: 20110228
  8. TRUVADA [Suspect]
     Indication: HIV INFECTION
     Dosage: 1 TAB, DAILY
     Dates: start: 20101119, end: 20110228
  9. TRUVADA [Suspect]
     Indication: HUMAN IMMUNODEFICIENCY VIRUS TRANSMISSION
     Dosage: 1 TAB, DAILY
     Dates: start: 20100618, end: 20101117
  10. TRUVADA [Suspect]
     Indication: HIV INFECTION
     Dosage: 1 TAB, DAILY
     Dates: start: 20100618, end: 20101117
  11. ISENTRESS [Suspect]
     Indication: HIV INFECTION
     Dosage: 400 MG, BID, TRANSPLACEN
     Route: 064
     Dates: start: 20091213, end: 20100516
  12. ISENTRESS [Suspect]
     Indication: HIV INFECTION
     Dosage: 400 MG, BID, TRANSPLACEN
     Route: 064
     Dates: start: 20101119, end: 20110228
  13. ISENTRESS [Suspect]
     Indication: HIV INFECTION
     Dosage: 400 MG, BID, TRANSPLACEN
     Route: 064
     Dates: start: 20090618, end: 20090717
  14. ISENTRESS [Suspect]
     Indication: HIV INFECTION
     Dosage: 400 MG, BID, TRANSPLACEN
     Route: 064
     Dates: start: 20100618, end: 20101117
  15. ISENTRESS [Suspect]
     Indication: HIV INFECTION
     Dosage: 400 MG, BID, TRANSPLACEN
     Route: 064
     Dates: start: 20090721, end: 20091211
  16. ISENTRESS [Suspect]
     Indication: HIV INFECTION
     Dosage: 400 MG, BID, TRANSPLACEN
     Route: 064
     Dates: start: 20100518, end: 20100616
  17. PLACEBO [Suspect]
     Indication: HIV INFECTION
     Dates: start: 20090721, end: 20091211
  18. PLACEBO [Suspect]
     Indication: HIV INFECTION
     Dates: start: 20091113, end: 20100616
  19. PLACEBO [Suspect]
     Indication: HIV INFECTION
     Dates: start: 20090618, end: 20090717
  20. PLACEBO [Suspect]
     Indication: HIV INFECTION
     Dates: start: 20100618, end: 20101117
  21. PLACEBO [Suspect]
     Indication: HIV INFECTION
     Dates: start: 20101119, end: 20110228
  22. TRIPHASIL-21 [Concomitant]

REACTIONS (3)
  - MATERNAL DRUGS AFFECTING FOETUS [None]
  - JAUNDICE NEONATAL [None]
  - CAESAREAN SECTION [None]
